FAERS Safety Report 9664171 (Version 1)
Quarter: 2013Q4

REPORT INFORMATION
  Report Type: Report from Study
  Country: LB (occurrence: LB)
  Receive Date: 20131101
  Receipt Date: 20131101
  Transmission Date: 20140711
  Serious: Yes (Hospitalization)
  Sender: FDA-Public Use
  Company Number: LB-SA-2013SA110333

PATIENT
  Age: 71 Year
  Sex: Female

DRUGS (9)
  1. LANTUS SOLOSTAR [Suspect]
     Indication: DIABETES MELLITUS
     Dosage: DOSE:15 UNIT(S)
     Route: 058
     Dates: start: 2012
  2. SOLOSTAR [Concomitant]
  3. GALVUSMET [Concomitant]
     Indication: DIABETES MELLITUS
     Route: 048
  4. VASTAREL [Concomitant]
     Route: 048
  5. TANAKAN [Concomitant]
     Route: 048
  6. ROSUVASTATIN [Concomitant]
     Route: 048
  7. APROVEL [Concomitant]
     Route: 048
  8. DILATREND [Concomitant]
     Route: 048
  9. ASPICOT [Concomitant]
     Route: 048

REACTIONS (1)
  - Retinal operation [Unknown]
